FAERS Safety Report 11690239 (Version 14)
Quarter: 2018Q1

REPORT INFORMATION
  Report Type: Spontaneous
  Country: US (occurrence: US)
  Receive Date: 20151102
  Receipt Date: 20180302
  Transmission Date: 20180508
  Serious: Yes (Disabling, Other)
  Sender: FDA-Public Use
  Company Number: US-009507513-1510USA014869

PATIENT
  Sex: Male

DRUGS (6)
  1. PROPECIA [Suspect]
     Active Substance: FINASTERIDE
     Dosage: 1 MG, DAILY
     Route: 048
     Dates: start: 20140827, end: 20140905
  2. ELAVIL [Suspect]
     Active Substance: AMITRIPTYLINE HYDROCHLORIDE
     Indication: LYME DISEASE
     Dosage: UNK UNK, UNKNOWN
     Route: 065
     Dates: start: 2010, end: 2014
  3. FINASTERIDE. [Suspect]
     Active Substance: FINASTERIDE
     Indication: PRODUCT USED FOR UNKNOWN INDICATION
     Dosage: 1 MG, UNKNOWN
     Route: 048
     Dates: start: 20160615
  4. PROPECIA [Suspect]
     Active Substance: FINASTERIDE
     Indication: ALOPECIA
     Dosage: 1 MG, UNKNOWN
     Route: 048
     Dates: start: 20050208
  5. FINASTERIDE. [Suspect]
     Active Substance: FINASTERIDE
     Indication: ALOPECIA
     Dosage: 1/4  5 MG TAB, QD
     Route: 048
     Dates: start: 20140810, end: 20140905
  6. PROPECIA [Suspect]
     Active Substance: FINASTERIDE
     Dosage: 1 MG, UNKNOWN
     Route: 048
     Dates: start: 20140814, end: 201410

REACTIONS (123)
  - Anxiety [Not Recovered/Not Resolved]
  - Flank pain [Not Recovered/Not Resolved]
  - Insomnia [Not Recovered/Not Resolved]
  - Myalgia [Not Recovered/Not Resolved]
  - Blood cholesterol increased [Not Recovered/Not Resolved]
  - Head discomfort [Not Recovered/Not Resolved]
  - Body temperature decreased [Not Recovered/Not Resolved]
  - Skin burning sensation [Not Recovered/Not Resolved]
  - Erectile dysfunction [Not Recovered/Not Resolved]
  - Personality change [Not Recovered/Not Resolved]
  - Diplopia [Unknown]
  - Optic atrophy [Unknown]
  - Hypothyroidism [Not Recovered/Not Resolved]
  - Arthropod bite [Unknown]
  - Autonomic nervous system imbalance [Not Recovered/Not Resolved]
  - Visual impairment [Unknown]
  - Suicidal ideation [Not Recovered/Not Resolved]
  - Disturbance in attention [Not Recovered/Not Resolved]
  - Pain [Not Recovered/Not Resolved]
  - Visual impairment [Not Recovered/Not Resolved]
  - Photophobia [Not Recovered/Not Resolved]
  - Tendonitis [Not Recovered/Not Resolved]
  - Laboratory test abnormal [Not Recovered/Not Resolved]
  - Vitamin D decreased [Not Recovered/Not Resolved]
  - Pruritus [Not Recovered/Not Resolved]
  - Patellofemoral pain syndrome [Unknown]
  - Nausea [Unknown]
  - Dysuria [Unknown]
  - Off label use [Unknown]
  - Immune system disorder [Not Recovered/Not Resolved]
  - Meningitis [Unknown]
  - Optic disc disorder [Unknown]
  - Emotional disorder [Not Recovered/Not Resolved]
  - Oral herpes [Not Recovered/Not Resolved]
  - Temperature intolerance [Not Recovered/Not Resolved]
  - Gait disturbance [Not Recovered/Not Resolved]
  - Hypogonadism [Not Recovered/Not Resolved]
  - Testicular pain [Not Recovered/Not Resolved]
  - Crying [Unknown]
  - Dizziness [Unknown]
  - Varicocele [Unknown]
  - Chest pain [Unknown]
  - Dyspnoea [Unknown]
  - Burning sensation [Unknown]
  - Systemic lupus erythematosus [Unknown]
  - Neuropathy peripheral [Unknown]
  - Photophobia [Recovering/Resolving]
  - Headache [Recovering/Resolving]
  - Dry eye [Not Recovered/Not Resolved]
  - Paraesthesia [Not Recovered/Not Resolved]
  - Speech disorder [Not Recovered/Not Resolved]
  - Loss of libido [Not Recovered/Not Resolved]
  - Breast discomfort [Not Recovered/Not Resolved]
  - Hydrocele [Unknown]
  - Tendonitis [Unknown]
  - Eyelid disorder [Unknown]
  - Adverse event [Not Recovered/Not Resolved]
  - Prostatic pain [Not Recovered/Not Resolved]
  - Pollakiuria [Not Recovered/Not Resolved]
  - Muscle twitching [Not Recovered/Not Resolved]
  - Arthralgia [Not Recovered/Not Resolved]
  - Hypertensive crisis [Unknown]
  - Gynaecomastia [Not Recovered/Not Resolved]
  - Semen volume decreased [Not Recovered/Not Resolved]
  - Ejaculation disorder [Not Recovered/Not Resolved]
  - Anorgasmia [Unknown]
  - Central obesity [Unknown]
  - Reiter^s syndrome [Unknown]
  - Hypothalamo-pituitary disorder [Unknown]
  - Toxoplasmosis [Unknown]
  - Vitreous floaters [Unknown]
  - Abdominal pain [Unknown]
  - Migraine with aura [Unknown]
  - Adrenal insufficiency [Unknown]
  - Emotional distress [Not Recovered/Not Resolved]
  - Hyperhidrosis [Not Recovered/Not Resolved]
  - Penile size reduced [Not Recovered/Not Resolved]
  - Apathy [Not Recovered/Not Resolved]
  - Anhedonia [Not Recovered/Not Resolved]
  - Motion sickness [Not Recovered/Not Resolved]
  - Lyme disease [Not Recovered/Not Resolved]
  - Cerebrovascular disorder [Not Recovered/Not Resolved]
  - Weight loss poor [Not Recovered/Not Resolved]
  - Cortisol increased [Not Recovered/Not Resolved]
  - Red blood cell count decreased [Not Recovered/Not Resolved]
  - Dizziness [Not Recovered/Not Resolved]
  - Cognitive disorder [Unknown]
  - Acne [Unknown]
  - Neuralgia [Unknown]
  - Gastritis [Unknown]
  - Back pain [Unknown]
  - Panic disorder [Not Recovered/Not Resolved]
  - Fear [Not Recovered/Not Resolved]
  - Palpitations [Not Recovered/Not Resolved]
  - Memory impairment [Not Recovered/Not Resolved]
  - Tinnitus [Not Recovered/Not Resolved]
  - Hypoaesthesia [Not Recovered/Not Resolved]
  - Arthritis [Not Recovered/Not Resolved]
  - Chondropathy [Not Recovered/Not Resolved]
  - White blood cell count decreased [Not Recovered/Not Resolved]
  - Lethargy [Unknown]
  - Borderline glaucoma [Unknown]
  - Intracranial pressure increased [Unknown]
  - Hypercholesterolaemia [Unknown]
  - Mood swings [Not Recovered/Not Resolved]
  - Labile blood pressure [Not Recovered/Not Resolved]
  - Major depression [Not Recovered/Not Resolved]
  - Adrenal disorder [Not Recovered/Not Resolved]
  - Fatigue [Not Recovered/Not Resolved]
  - Feeling abnormal [Not Recovered/Not Resolved]
  - Glare [Not Recovered/Not Resolved]
  - Halo vision [Not Recovered/Not Resolved]
  - Eye haemorrhage [Not Recovered/Not Resolved]
  - Polyarthritis [Not Recovered/Not Resolved]
  - Sexual dysfunction [Not Recovered/Not Resolved]
  - Presyncope [Unknown]
  - Weight decreased [Recovering/Resolving]
  - Epistaxis [Unknown]
  - Flushing [Unknown]
  - Testicular atrophy [Unknown]
  - Drug hypersensitivity [Unknown]
  - Nonspecific reaction [Unknown]
  - Dermatitis [Recovering/Resolving]

NARRATIVE: CASE EVENT DATE: 2014
